FAERS Safety Report 18406264 (Version 2)
Quarter: 2021Q1

REPORT INFORMATION
  Report Type: Spontaneous
  Country: US (occurrence: US)
  Receive Date: 20201020
  Receipt Date: 20210131
  Transmission Date: 20210419
  Serious: Yes (Disabling, Other)
  Sender: FDA-Public Use
  Company Number: US-PURDUE-USA-2020-0171308

PATIENT

DRUGS (2)
  1. MORPHINE SULFATE EXTENDED?RELEASE TABLETS (RHODES 74?769, 74?862) [Suspect]
     Active Substance: MORPHINE SULFATE
     Indication: PAIN
     Dosage: UNK
     Route: 048
  2. MORPHINE SULFATE (SIMILAR TO NDA 19?516) [Suspect]
     Active Substance: MORPHINE SULFATE
     Indication: PAIN
     Dosage: 30 MG, TID
     Route: 065
     Dates: start: 2011, end: 2017

REACTIONS (8)
  - Drug withdrawal syndrome [Unknown]
  - Developmental delay [Unknown]
  - Drug dependence [Unknown]
  - Cardiac disorder [Unknown]
  - Surgery [Unknown]
  - Learning disability [Unknown]
  - Pain [Unknown]
  - Insomnia [Unknown]
